FAERS Safety Report 6553670-6 (Version None)
Quarter: 2010Q1

REPORT INFORMATION
  Report Type: 
  Country: None (occurrence: None)
  Receive Date: 20100127
  Receipt Date: 20100118
  Transmission Date: 20100710
  Serious: Yes (Hospitalization)
  Sender: FDA-Public Use
  Company Number: PHHY2010FR02744

PATIENT
  Sex: Female

DRUGS (3)
  1. TEGRETOL [Suspect]
     Indication: FACIAL NEURALGIA
     Dosage: 200 MG PER DAY
     Dates: start: 20090811, end: 20090815
  2. NOROXIN [Suspect]
     Indication: URINARY TRACT INFECTION
     Dosage: 400 MG, UNK
     Dates: start: 20090815
  3. RIVOTRIL [Concomitant]
     Dosage: ONCE
     Dates: start: 20090811

REACTIONS (2)
  - THROMBOCYTOPENIA [None]
  - URINARY TRACT INFECTION [None]
